FAERS Safety Report 7921623-9 (Version None)
Quarter: 2011Q4

REPORT INFORMATION
  Report Type: 
  Country: None (occurrence: None)
  Receive Date: 20111117
  Receipt Date: 20110816
  Transmission Date: 20120403
  Serious: Yes (Death, Hospitalization, Other)
  Sender: FDA-Public Use
  Company Number: US-BRISTOL-MYERS SQUIBB COMPANY-15974132

PATIENT
  Sex: Female
  Weight: 71 kg

DRUGS (7)
  1. SYNTHROID [Concomitant]
     Dates: end: 20110602
  2. NEULASTA [Suspect]
     Indication: CHEMOTHERAPY
     Dosage: ONE DOSE SOLN FOR INJ
     Route: 058
     Dates: start: 20110527, end: 20110527
  3. CARBOPLATIN [Suspect]
     Route: 042
     Dates: start: 20110301, end: 20110524
  4. ETOPOSIDE [Suspect]
     Route: 042
     Dates: start: 20110301, end: 20110526
  5. MORPHINE SULFATE [Concomitant]
     Dates: end: 20110502
  6. NEUPOGEN [Suspect]
     Indication: CHEMOTHERAPY
     Route: 058
     Dates: start: 20110611, end: 20110621
  7. AMLODIPINE [Concomitant]
     Dates: end: 20110602

REACTIONS (3)
  - THROMBOCYTOPENIA [None]
  - NEUTROPENIA [None]
  - DEATH [None]
